FAERS Safety Report 6554928-7 (Version None)
Quarter: 2010Q1

REPORT INFORMATION
  Report Type: 
  Country: None (occurrence: None)
  Receive Date: 20100126
  Receipt Date: 20100119
  Transmission Date: 20100710
  Serious: Yes (Death)
  Sender: FDA-Public Use
  Company Number: 2009JP007053

PATIENT
  Age: 11 Month
  Sex: Male
  Weight: 6.8 kg

DRUGS (12)
  1. PROGRAF [Suspect]
     Indication: CORD BLOOD TRANSPLANT THERAPY
     Dosage: 0.35 MG, CONTINUOUS, IV NOS
     Route: 042
     Dates: start: 20081210, end: 20081227
  2. METHOTREXATE [Concomitant]
  3. FLUDARA [Concomitant]
  4. ALKERAN [Concomitant]
  5. FRAGMIN [Concomitant]
  6. ACIROVEC (ACICLOVIR) INJECTION [Concomitant]
  7. TAZOCIN (PIPERACILLIN SODIUM, TAZOBACTAM SODIUM) INJECTION [Concomitant]
  8. PREDNISOLONE [Concomitant]
  9. FUNGUARD (MICAFUNGIN) INJECTION [Concomitant]
  10. NEU-UP (NARTOGRASTIM) INJECTION [Concomitant]
  11. NITOPRO (NITROPRUSSIDE SODIUM) INJECTION [Concomitant]
  12. VANILONE (CYCLOVALONE) INJECTION [Concomitant]

REACTIONS (33)
  - ANAEMIA [None]
  - BLOOD CULTURE POSITIVE [None]
  - BLOOD PRESSURE SYSTOLIC INCREASED [None]
  - BLOOD URINE PRESENT [None]
  - BODY TEMPERATURE INCREASED [None]
  - CONTINUOUS HAEMODIAFILTRATION [None]
  - DIARRHOEA [None]
  - DISEASE COMPLICATION [None]
  - DISSEMINATED INTRAVASCULAR COAGULATION [None]
  - GASTROINTESTINAL HAEMORRHAGE [None]
  - HAEMOLYSIS [None]
  - HEART RATE INCREASED [None]
  - HEPATIC FUNCTION ABNORMAL [None]
  - HEPATOMEGALY [None]
  - HISTIOCYTOSIS HAEMATOPHAGIC [None]
  - MELAENA [None]
  - MULTI-ORGAN FAILURE [None]
  - NO THERAPEUTIC RESPONSE [None]
  - OCULAR ICTERUS [None]
  - OEDEMA PERIPHERAL [None]
  - PALLOR [None]
  - PNEUMOMEDIASTINUM [None]
  - PULMONARY HAEMORRHAGE [None]
  - PYREXIA [None]
  - RENAL IMPAIRMENT [None]
  - RESPIRATORY RATE INCREASED [None]
  - SPLENOMEGALY [None]
  - STAPHYLOCOCCAL INFECTION [None]
  - THROMBOTIC MICROANGIOPATHY [None]
  - TRACHEAL HAEMORRHAGE [None]
  - VENOOCCLUSIVE DISEASE [None]
  - WEIGHT INCREASED [None]
  - WHITE BLOOD CELL COUNT DECREASED [None]
